FAERS Safety Report 6070095-0 (Version None)
Quarter: 2009Q1

REPORT INFORMATION
  Report Type: 
  Country: None (occurrence: None)
  Receive Date: 20090209
  Receipt Date: 20090130
  Transmission Date: 20090719
  Serious: Yes (Hospitalization)
  Sender: FDA-Public Use
  Company Number: US-AVENTIS-200910854US

PATIENT
  Age: 61 Year
  Sex: Female

DRUGS (6)
  1. LANTUS [Suspect]
     Route: 058
  2. ACTOS [Concomitant]
     Dosage: DOSE: UNK
  3. GLUCOTROL [Concomitant]
     Dosage: DOSE: UNK
  4. METFORMIN HCL [Concomitant]
     Dosage: DOSE: UNK
  5. INSULIN [Concomitant]
  6. DRUG USED IN DIABETES [Concomitant]

REACTIONS (3)
  - BLOOD GLUCOSE FLUCTUATION [None]
  - MEDICATION ERROR [None]
  - MENTAL DISORDER [None]
